FAERS Safety Report 10371898 (Version 4)
Quarter: 2014Q3

REPORT INFORMATION
  Report Type: Spontaneous
  Country: US (occurrence: US)
  Receive Date: 20140808
  Receipt Date: 20140916
  Transmission Date: 20150326
  Serious: Yes (Hospitalization, Other)
  Sender: FDA-Public Use
  Company Number: US-PFIZER INC-2014218266

PATIENT
  Age: 64 Year
  Sex: Male
  Weight: 131.7 kg

DRUGS (19)
  1. INLYTA [Suspect]
     Active Substance: AXITINIB
     Dosage: 10MG, CYCLIC (BID) (ON 2 WEEKS, OFF 1 WEEK)
     Route: 048
     Dates: end: 20131118
  2. ASPIRIN. [Concomitant]
     Active Substance: ASPIRIN
     Dosage: 325 MG, DAILY (EVERY DAY)
     Route: 048
  3. SALMETEROL XINAFOATE/FLUTICASONE PROPIONATE [Concomitant]
     Active Substance: FLUTICASONE PROPIONATE\SALMETEROL XINAFOATE
     Dosage: 12 G/L, UNK
  4. INLYTA [Suspect]
     Active Substance: AXITINIB
     Indication: METASTATIC RENAL CELL CARCINOMA
     Dosage: 5 MG, CYCLIC (BID) (ON 2 WEEKS, OFF 1 WEEK)
     Route: 048
     Dates: start: 20120913
  5. INLYTA [Suspect]
     Active Substance: AXITINIB
     Dosage: 5 MG, CYCLIC (BID) (ON 2 WEEKS, OFF 1 WEEK)
     Route: 048
  6. INLYTA [Suspect]
     Active Substance: AXITINIB
     Dosage: 5 MG, CYCLIC (BID) (ON 2 WEEKS, OFF 1 WEEK)
     Route: 048
  7. DOXAZOSIN MESYLATE. [Concomitant]
     Active Substance: DOXAZOSIN MESYLATE
     Dosage: 4 MG, DAILY (EVERY DAY)
  8. ISOSORBIDE MONONITRATE, SR [Concomitant]
     Dosage: 90 MG, DAILY (EVERY DAY), (60 MG, 1 1/2 TABLET)
     Route: 048
  9. INSULIN GLARGINE [Concomitant]
     Active Substance: INSULIN GLARGINE
     Dosage: 22 IU, DAILY IN THE EVENING
     Route: 058
  10. INSULIN LISPRO [Concomitant]
     Active Substance: INSULIN LISPRO
     Dosage: 14 IU, 3X/DAY
     Route: 058
  11. CHLORTHALIDONE. [Concomitant]
     Active Substance: CHLORTHALIDONE
     Dosage: 25 MG, DAILY (EVERY DAY)
     Route: 048
  12. INLYTA [Suspect]
     Active Substance: AXITINIB
     Dosage: 5 MG, CYCLIC (BID) (ON 2 WEEKS, OFF 1 WEEK)
     Route: 048
  13. ATORVASTATIN [Concomitant]
     Active Substance: ATORVASTATIN
     Dosage: 20 MG, DAILY (EVERY DAY)
  14. NORVASC [Concomitant]
     Active Substance: AMLODIPINE BESYLATE
     Dosage: 5 MG, DAILY (EVERY DAY), (10 MG, 1/2 TABLET QD)
     Route: 048
  15. BISOPROLOL FUMARATE/HYDROCHLOROTHIAZIDE [Concomitant]
     Dosage: 5 MG/6.25 MG, DAILY (EVERY DAY)
     Route: 048
  16. INLYTA [Suspect]
     Active Substance: AXITINIB
     Dosage: 10MG, CYCLIC (BID) (ON 2 WEEKS, OFF 1 WEEK)
     Route: 048
  17. ALBUTEROL. [Concomitant]
     Active Substance: ALBUTEROL
     Dosage: UNK, REFILL
  18. ALBUTEROL. [Concomitant]
     Active Substance: ALBUTEROL
     Dosage: 3 ML, UNK
     Route: 055
     Dates: start: 20131227
  19. IPRATROPIUM BROMIDE. [Concomitant]
     Active Substance: IPRATROPIUM BROMIDE
     Dosage: 3 ML, UNK
     Route: 055
     Dates: start: 20131227

REACTIONS (11)
  - Coronary artery thrombosis [Recovering/Resolving]
  - Cerebrovascular accident [Recovered/Resolved]
  - Chronic obstructive pulmonary disease [Unknown]
  - Atrial fibrillation [Recovering/Resolving]
  - Renal impairment [Recovering/Resolving]
  - Fatigue [Unknown]
  - Pain in extremity [Unknown]
  - Bronchitis [Recovering/Resolving]
  - Dyspnoea [Not Recovered/Not Resolved]
  - Haemoptysis [Recovered/Resolved]
  - Arrhythmia [Unknown]

NARRATIVE: CASE EVENT DATE: 20140227
